FAERS Safety Report 18854595 (Version 2)
Quarter: 2021Q1

REPORT INFORMATION
  Report Type: Spontaneous
  Country: US (occurrence: US)
  Receive Date: 20210205
  Receipt Date: 20210311
  Transmission Date: 20210420
  Serious: Yes (Other)
  Sender: FDA-Public Use
  Company Number: US-DSJP-DSU-2021-102904

PATIENT
  Age: 52 Year
  Sex: Female

DRUGS (3)
  1. ENHERTU [Suspect]
     Active Substance: FAM-TRASTUZUMAB DERUXTECAN-NXKI
     Indication: BREAST CANCER
     Dosage: 5.4 MG/KG
     Route: 042
  2. ENHERTU [Suspect]
     Active Substance: FAM-TRASTUZUMAB DERUXTECAN-NXKI
     Dosage: 3.2 MG/KG
     Route: 042
     Dates: start: 20210105
  3. ENHERTU [Suspect]
     Active Substance: FAM-TRASTUZUMAB DERUXTECAN-NXKI
     Dosage: 4.4 MG/KG
     Route: 042

REACTIONS (6)
  - Cough [Unknown]
  - Interstitial lung disease [Unknown]
  - Lung infiltration [Unknown]
  - Gastrointestinal disorder [Unknown]
  - Fatigue [Unknown]
  - Respiratory symptom [Unknown]

NARRATIVE: CASE EVENT DATE: 202009
